FAERS Safety Report 5699486-4 (Version None)
Quarter: 2008Q2

REPORT INFORMATION
  Report Type: 
  Country: None (occurrence: None)
  Receive Date: 20080410
  Receipt Date: 20080225
  Transmission Date: 20081010
  Serious: No
  Sender: FDA-Public Use
  Company Number: US-BAYER-200815527NA

PATIENT
  Age: 32 Year
  Sex: Female
  Weight: 77 kg

DRUGS (1)
  1. MIRENA [Suspect]
     Indication: CONTRACEPTION
     Route: 015
     Dates: start: 20071201, end: 20080101

REACTIONS (2)
  - PROCEDURAL PAIN [None]
  - VAGINAL HAEMORRHAGE [None]
